FAERS Safety Report 20406705 (Version 2)
Quarter: 2022Q1

REPORT INFORMATION
  Report Type: Report from Study
  Country: CA (occurrence: CA)
  Receive Date: 20220131
  Receipt Date: 20220225
  Transmission Date: 20220423
  Serious: Yes (Other)
  Sender: FDA-Public Use
  Company Number: CA-BAUSCH-BL-2021-039078

PATIENT

DRUGS (7)
  1. CONTRAVE [Suspect]
     Active Substance: BUPROPION HYDROCHLORIDE\NALTREXONE HYDROCHLORIDE
     Indication: Weight control
     Dosage: 90/8 MG, 1 TABLETS PER DAY
     Route: 048
     Dates: start: 20211103, end: 20211109
  2. CONTRAVE [Suspect]
     Active Substance: BUPROPION HYDROCHLORIDE\NALTREXONE HYDROCHLORIDE
     Dosage: 90/8 MG 2 TABLETS PER DAY (1 IN 1 D)
     Route: 048
     Dates: start: 20211110, end: 20211110
  3. CONTRAVE [Suspect]
     Active Substance: BUPROPION HYDROCHLORIDE\NALTREXONE HYDROCHLORIDE
     Dosage: 90/8 MG, 1 TABLET PER DAY
     Route: 048
     Dates: start: 20211111, end: 20211116
  4. CONTRAVE [Suspect]
     Active Substance: BUPROPION HYDROCHLORIDE\NALTREXONE HYDROCHLORIDE
     Dosage: 90/8 MG, 2 TABLETS PER DAY, 1 TAB IN MORNING AND 1 TAB IN EVENING
     Route: 048
     Dates: start: 20211117, end: 20211231
  5. CONTRAVE [Suspect]
     Active Substance: BUPROPION HYDROCHLORIDE\NALTREXONE HYDROCHLORIDE
     Dosage: 90/8 MG, 1 TAB IN MORNING
     Route: 048
     Dates: start: 20220110, end: 20220116
  6. CONTRAVE [Suspect]
     Active Substance: BUPROPION HYDROCHLORIDE\NALTREXONE HYDROCHLORIDE
     Dosage: 90/8 MG, TAB IN MORNING AND 1 TAB IN EVENING
     Route: 048
     Dates: start: 20220117
  7. CANDESARTAN [Concomitant]
     Active Substance: CANDESARTAN
     Indication: Hypertension
     Dosage: 16 MG, 1 IN 1 D
     Route: 048
     Dates: start: 20201103

REACTIONS (12)
  - Blood pressure diastolic increased [Not Recovered/Not Resolved]
  - Blood pressure decreased [Recovered/Resolved]
  - COVID-19 [Unknown]
  - Food craving [Not Recovered/Not Resolved]
  - Blood pressure increased [Not Recovered/Not Resolved]
  - Presyncope [Recovered/Resolved]
  - Irritability [Recovered/Resolved]
  - Lethargy [Recovered/Resolved]
  - Feeling abnormal [Recovered/Resolved]
  - Nausea [Recovered/Resolved]
  - Therapeutic response unexpected [Unknown]
  - Drug titration error [Unknown]

NARRATIVE: CASE EVENT DATE: 20210101
